FAERS Safety Report 24001463 (Version 3)
Quarter: 2025Q1

REPORT INFORMATION
  Report Type: Spontaneous
  Country: AT (occurrence: AT)
  Receive Date: 20240621
  Receipt Date: 20250220
  Transmission Date: 20250409
  Serious: Yes (Disabling, Other)
  Sender: TEVA
  Company Number: AT-BRISTOL-MYERS SQUIBB COMPANY-2024-084707

PATIENT
  Age: 72 Year
  Sex: Male

DRUGS (4)
  1. PREDNISOLONE [Suspect]
     Active Substance: PREDNISOLONE
     Indication: Immune-mediated hepatitis
     Route: 048
  2. PREDNISOLONE [Suspect]
     Active Substance: PREDNISOLONE
     Indication: Immune-mediated hepatitis
     Route: 042
  3. NIVOLUMAB [Suspect]
     Active Substance: NIVOLUMAB
     Indication: Metastatic malignant melanoma
     Route: 065
     Dates: start: 202302, end: 202303
  4. IPILIMUMAB [Suspect]
     Active Substance: IPILIMUMAB
     Indication: Metastatic malignant melanoma
     Route: 065
     Dates: start: 202302, end: 202303

REACTIONS (3)
  - Immune-mediated hepatitis [Recovering/Resolving]
  - Multifocal motor neuropathy [Recovering/Resolving]
  - Condition aggravated [Recovering/Resolving]
